FAERS Safety Report 24986104 (Version 1)
Quarter: 2025Q1

REPORT INFORMATION
  Report Type: Spontaneous
  Country: US (occurrence: US)
  Receive Date: 20250219
  Receipt Date: 20250219
  Transmission Date: 20250408
  Serious: Yes (Other)
  Sender: UCB
  Company Number: US-UCBSA-2025008266

PATIENT
  Sex: Female

DRUGS (1)
  1. VIMPAT [Suspect]
     Active Substance: LACOSAMIDE
     Indication: Seizure
     Dosage: 20 MILLILITER, 2X/DAY (BID)
     Route: 048

REACTIONS (4)
  - Generalised tonic-clonic seizure [Unknown]
  - Therapeutic response changed [Unknown]
  - Product availability issue [Unknown]
  - Product prescribing issue [Unknown]
